FAERS Safety Report 11678197 (Version 1)
Quarter: 2015Q4

REPORT INFORMATION
  Report Type: Spontaneous
  Country: US (occurrence: US)
  Receive Date: 20151027
  Receipt Date: 20151027
  Transmission Date: 20160304
  Serious: No
  Sender: FDA-Public Use
  Company Number: US-ELI_LILLY_AND_COMPANY-US201011001085

PATIENT
  Age: 69 Year
  Sex: Female

DRUGS (2)
  1. FORTEO [Suspect]
     Active Substance: TERIPARATIDE
     Dosage: 20 UG, DAILY (1/D)
     Dates: start: 20101018, end: 20101029
  2. FORTEO [Suspect]
     Active Substance: TERIPARATIDE
     Indication: OSTEOPOROSIS
     Dosage: 20 UG, DAILY (1/D)
     Dates: start: 2009, end: 201001

REACTIONS (9)
  - Irritability [Unknown]
  - Hypersomnia [Unknown]
  - Bone density decreased [Unknown]
  - Breast calcifications [Unknown]
  - Dizziness [Recovering/Resolving]
  - Balance disorder [Recovering/Resolving]
  - Confusional state [Unknown]
  - Renal cyst [Unknown]
  - Drug dose omission [Unknown]

NARRATIVE: CASE EVENT DATE: 201001
